FAERS Safety Report 17229349 (Version 1)
Quarter: 2020Q1

REPORT INFORMATION
  Report Type: Spontaneous
  Country: ES (occurrence: ES)
  Receive Date: 20200103
  Receipt Date: 20200103
  Transmission Date: 20200409
  Serious: Yes (Life-Threatening, Hospitalization)
  Sender: FDA-Public Use
  Company Number: ES-EISAI MEDICAL RESEARCH-EC-2020-068001

PATIENT
  Age: 72 Year
  Sex: Male

DRUGS (7)
  1. EUTIROX [Concomitant]
     Active Substance: LEVOTHYROXINE SODIUM
     Indication: PRODUCT USED FOR UNKNOWN INDICATION
     Dosage: DOSAGE AND FREQUENCY UNKNOWN
  2. LENVATINIB [Suspect]
     Active Substance: LENVATINIB
     Indication: THYROID CANCER METASTATIC
     Route: 048
     Dates: start: 20180918
  3. MEGESTROL [Concomitant]
     Active Substance: MEGESTROL
     Indication: PRODUCT USED FOR UNKNOWN INDICATION
     Dosage: DOSAGE AND FREQUENCY UNKNOWN
  4. PARACETAMOL [Concomitant]
     Active Substance: ACETAMINOPHEN
     Indication: PRODUCT USED FOR UNKNOWN INDICATION
     Dosage: DOSAGE AND FREQUENCY UNKNOWN
  5. VALSARTAN. [Concomitant]
     Active Substance: VALSARTAN
     Indication: PRODUCT USED FOR UNKNOWN INDICATION
     Dosage: DOSAGE AND FREQUENCY UNKNOWN
  6. HIDROFEROL [Concomitant]
     Active Substance: CALCIFEDIOL
     Indication: PRODUCT USED FOR UNKNOWN INDICATION
     Dosage: DOSAGE AND FREQUENCY UNKNOWN
  7. OPTOVITEB [Concomitant]
     Indication: PRODUCT USED FOR UNKNOWN INDICATION
     Dosage: DOSAGE AND FREQUENCY UNKNOWN

REACTIONS (1)
  - Acute myocardial infarction [Recovering/Resolving]

NARRATIVE: CASE EVENT DATE: 20191217
